FAERS Safety Report 10414221 (Version 1)
Quarter: 2014Q3

REPORT INFORMATION
  Report Type: Spontaneous
  Country: AU (occurrence: AU)
  Receive Date: 20140827
  Receipt Date: 20140827
  Transmission Date: 20150326
  Serious: Yes (Other)
  Sender: FDA-Public Use
  Company Number: ALCN2014AU004720

PATIENT
  Age: 7 Year
  Sex: Male

DRUGS (1)
  1. KETOTIFEN FUMARATE. [Suspect]
     Active Substance: KETOTIFEN FUMARATE
     Indication: CONJUNCTIVITIS ALLERGIC
     Dosage: 1 DF, BID
     Route: 047
     Dates: start: 200906

REACTIONS (4)
  - Visual acuity reduced [Recovering/Resolving]
  - Corneal disorder [Recovering/Resolving]
  - Corneal degeneration [Recovering/Resolving]
  - Corneal oedema [Recovering/Resolving]

NARRATIVE: CASE EVENT DATE: 200912
